FAERS Safety Report 7190268-3 (Version None)
Quarter: 2010Q4

REPORT INFORMATION
  Report Type: 
  Country: None (occurrence: None)
  Receive Date: 20101223
  Receipt Date: 20101217
  Transmission Date: 20110411
  Serious: Yes (Other)
  Sender: FDA-Public Use
  Company Number: ES-PFIZER INC-2010168856

PATIENT
  Age: 43 Year
  Sex: Female

DRUGS (1)
  1. CELEBREX [Suspect]
     Indication: MONARTHRITIS
     Dosage: 200 MG, 2X/DAY
     Route: 048
     Dates: start: 20100420, end: 20101019

REACTIONS (5)
  - BRADYCARDIA [None]
  - CHEST PAIN [None]
  - DIZZINESS [None]
  - ELECTROCARDIOGRAM REPOLARISATION ABNORMALITY [None]
  - NAUSEA [None]
